FAERS Safety Report 7500686-9 (Version None)
Quarter: 2011Q2

REPORT INFORMATION
  Report Type: 
  Country: None (occurrence: None)
  Receive Date: 20110524
  Receipt Date: 20110516
  Transmission Date: 20111010
  Serious: Yes (Other)
  Sender: FDA-Public Use
  Company Number: JP-MERCK-1105USA01459

PATIENT
  Age: 81 Year
  Sex: Male

DRUGS (5)
  1. AMARYL [Concomitant]
     Indication: TYPE 2 DIABETES MELLITUS
     Route: 048
  2. MEVARICH [Concomitant]
     Indication: DYSLIPIDAEMIA
     Route: 048
  3. RENIVACE [Concomitant]
     Indication: HYPERTENSION
     Route: 048
  4. PLETAL [Concomitant]
     Indication: LACUNAR INFARCTION
     Route: 048
     Dates: start: 20101005
  5. JANUVIA [Suspect]
     Indication: TYPE 2 DIABETES MELLITUS
     Route: 048
     Dates: start: 20110228, end: 20110425

REACTIONS (1)
  - THROMBOCYTOPENIA [None]
